FAERS Safety Report 12294751 (Version 2)
Quarter: 2016Q2

REPORT INFORMATION
  Report Type: Spontaneous
  Country: US (occurrence: US)
  Receive Date: 20160422
  Receipt Date: 20160616
  Transmission Date: 20160815
  Serious: Yes (Other)
  Sender: FDA-Public Use
  Company Number: PHEH2016US009678

PATIENT
  Sex: Female

DRUGS (1)
  1. VIVELLE-DOT [Suspect]
     Active Substance: ESTRADIOL
     Indication: PRODUCT USED FOR UNKNOWN INDICATION
     Dosage: 0.1 MG, UNK
     Route: 062
     Dates: start: 1999

REACTIONS (9)
  - Limb discomfort [Unknown]
  - Head injury [Unknown]
  - Blindness [Unknown]
  - Drug ineffective [Unknown]
  - Migraine [Unknown]
  - Monoplegia [Unknown]
  - Concussion [Unknown]
  - Fatigue [Unknown]
  - Multiple sclerosis [Unknown]
